FAERS Safety Report 19471412 (Version 1)
Quarter: 2021Q2

REPORT INFORMATION
  Report Type: Spontaneous
  Country: US (occurrence: US)
  Receive Date: 20210628
  Receipt Date: 20210628
  Transmission Date: 20210717
  Serious: Yes (Death)
  Sender: FDA-Public Use
  Company Number: None

PATIENT
  Age: 73 Year
  Sex: Female

DRUGS (18)
  1. TABRECTA [Suspect]
     Active Substance: CAPMATINIB
     Indication: METASTASES TO CENTRAL NERVOUS SYSTEM
     Route: 048
     Dates: start: 20210614
  2. CALCIUM/D3 [Concomitant]
     Active Substance: CALCIUM\CHOLECALCIFEROL
  3. HYDROCORT [Concomitant]
  4. ASPIRIN LOW EC [Concomitant]
  5. ONDANSETRON [Concomitant]
     Active Substance: ONDANSETRON
  6. NITROFURANTN [Concomitant]
     Active Substance: NITROFURANTOIN
  7. PAIN RELIEVR [Concomitant]
  8. HYDROCO/APAP [Concomitant]
     Active Substance: ACETAMINOPHEN\HYDROCODONE
  9. FEROSUL [Concomitant]
     Active Substance: FERROUS SULFATE
  10. STIOLTO RESPIMAT [Concomitant]
     Active Substance: OLODATEROL HYDROCHLORIDE\TIOTROPIUM BROMIDE MONOHYDRATE
  11. HYDROXYZ HCL [Concomitant]
     Active Substance: HYDROXYZINE HYDROCHLORIDE
  12. AMIODARONE [Concomitant]
     Active Substance: AMIODARONE
  13. GABAPENTIN. [Concomitant]
     Active Substance: GABAPENTIN
  14. ELIQUIS [Concomitant]
     Active Substance: APIXABAN
  15. ROSUVASTATIN. [Concomitant]
     Active Substance: ROSUVASTATIN
  16. DIGOXIN. [Concomitant]
     Active Substance: DIGOXIN
  17. MIRTAZAPINE. [Concomitant]
     Active Substance: MIRTAZAPINE
  18. PROCHLORPER [Concomitant]

REACTIONS (1)
  - Death [None]
